FAERS Safety Report 9358897 (Version 1)
Quarter: 2013Q2

REPORT INFORMATION
  Report Type: Spontaneous
  Country: US (occurrence: US)
  Receive Date: 20130620
  Receipt Date: 20130620
  Transmission Date: 20140414
  Serious: Yes (Life-Threatening)
  Sender: FDA-Public Use
  Company Number: US-JHP PHARMACEUTICALS, LLC-JHP201300395

PATIENT
  Age: 23 Year
  Sex: Male

DRUGS (4)
  1. ADRENALIN [Suspect]
     Indication: ASTHMA
     Route: 058
  2. ALBUTEROL [Suspect]
     Indication: ASTHMA
  3. TERBUTALINE [Suspect]
     Indication: ASTHMA
  4. STEROIDS [Suspect]
     Indication: ASTHMA

REACTIONS (1)
  - Drug ineffective [Recovered/Resolved]
